FAERS Safety Report 7537458-5 (Version None)
Quarter: 2011Q2

REPORT INFORMATION
  Report Type: 
  Country: None (occurrence: None)
  Receive Date: 20110609
  Receipt Date: 20110526
  Transmission Date: 20111010
  Serious: Yes (Other)
  Sender: FDA-Public Use
  Company Number: PHHY2010US88182

PATIENT
  Sex: Female

DRUGS (1)
  1. GLEEVEC [Suspect]
     Indication: BONE NEOPLASM MALIGNANT
     Dosage: 400 MG, QD
     Route: 048

REACTIONS (5)
  - PULMONARY MASS [None]
  - DIARRHOEA [None]
  - FLUID RETENTION [None]
  - GASTRIC DISORDER [None]
  - JOINT SWELLING [None]
